FAERS Safety Report 24228170 (Version 1)
Quarter: 2024Q3

REPORT INFORMATION
  Report Type: Spontaneous
  Country: RU (occurrence: RU)
  Receive Date: 20240820
  Receipt Date: 20240820
  Transmission Date: 20241017
  Serious: Yes (Death, Other)
  Sender: RANBAXY
  Company Number: RU-SUN PHARMACEUTICAL INDUSTRIES LTD-2024R1-461772

PATIENT
  Age: 45 Year
  Sex: Male
  Weight: 66 kg

DRUGS (7)
  1. AMIODARONE [Suspect]
     Active Substance: AMIODARONE
     Indication: Hypertrophic cardiomyopathy
     Dosage: 200 MILLIGRAM, QD
     Route: 065
  2. BISOPROLOL [Suspect]
     Active Substance: BISOPROLOL\BISOPROLOL FUMARATE
     Indication: Hypertrophic cardiomyopathy
     Dosage: 2.5 MILLIGRAM, QD
     Route: 065
  3. EMPAGLIFLOZIN [Suspect]
     Active Substance: EMPAGLIFLOZIN
     Indication: Hypertrophic cardiomyopathy
     Dosage: 10 MILLIGRAM, QD
     Route: 065
  4. SPIRONOLACTONE [Suspect]
     Active Substance: SPIRONOLACTONE
     Indication: Hypertrophic cardiomyopathy
     Dosage: 50 MILLIGRAM, QD
     Route: 065
  5. VALSARTAN [Suspect]
     Active Substance: VALSARTAN
     Indication: Hypertrophic cardiomyopathy
     Dosage: 50 MILLIGRAM, BID
     Route: 065
  6. SACUBITRIL [Suspect]
     Active Substance: SACUBITRIL
     Indication: Hypertrophic cardiomyopathy
     Dosage: 50 MILLIGRAM, QD
     Route: 065
  7. TORSEMIDE [Suspect]
     Active Substance: TORSEMIDE
     Indication: Hypertrophic cardiomyopathy
     Dosage: 40 MILLIGRAM, QD
     Route: 065

REACTIONS (1)
  - Amyloidosis [Fatal]
